FAERS Safety Report 5375048-3 (Version None)
Quarter: 2007Q2

REPORT INFORMATION
  Report Type: 
  Country: None (occurrence: None)
  Receive Date: 20070629
  Receipt Date: 20070521
  Transmission Date: 20071010
  Serious: Yes (Other)
  Sender: FDA-Public Use
  Company Number: A0600113A

PATIENT
  Age: 50 Year
  Sex: Male

DRUGS (2)
  1. AVANDARYL [Suspect]
     Dosage: 1TAB PER DAY
     Route: 048
     Dates: start: 20060309
  2. NO CONCURRENT MEDICATION [Concomitant]

REACTIONS (5)
  - BLOOD GLUCOSE INCREASED [None]
  - MACULAR OEDEMA [None]
  - VISION BLURRED [None]
  - VISUAL ACUITY REDUCED [None]
  - WEIGHT INCREASED [None]
